FAERS Safety Report 5469250-X (Version None)
Quarter: 2007Q3

REPORT INFORMATION
  Report Type: 
  Country: None (occurrence: None)
  Receive Date: 20070925
  Receipt Date: 20070925
  Transmission Date: 20080115
  Serious: No
  Sender: FDA-Public Use
  Company Number: None

PATIENT
  Age: 63 Year
  Sex: Female
  Weight: 79.8331 kg

DRUGS (3)
  1. HYDROCODONE BITARTRATE AND ACETAMINOPHEN [Suspect]
     Indication: MIGRAINE
     Dosage: 7.5/750  EVERY 6 HOURS PRN  PO
     Route: 048
     Dates: start: 20020101, end: 20070101
  2. HYDROCODONE BITARTRATE AND ACETAMINOPHEN [Suspect]
     Indication: PAIN
     Dosage: 7.5/750  EVERY 6 HOURS PRN  PO
     Route: 048
     Dates: start: 20020101, end: 20070101
  3. HYDROCODONE BITARTRATE AND ACETAMINOPHEN [Suspect]
     Indication: PAIN IN EXTREMITY
     Dosage: 7.5/750  EVERY 6 HOURS PRN  PO
     Route: 048
     Dates: start: 20020101, end: 20070101

REACTIONS (5)
  - DRUG DIVERSION [None]
  - DRUG INEFFECTIVE [None]
  - INADEQUATE ANALGESIA [None]
  - PHARMACEUTICAL PRODUCT COMPLAINT [None]
  - POOR QUALITY DRUG ADMINISTERED [None]
